FAERS Safety Report 5861822-3 (Version None)
Quarter: 2008Q3

REPORT INFORMATION
  Report Type: 
  Country: None (occurrence: None)
  Receive Date: 20080827
  Receipt Date: 20080707
  Transmission Date: 20090109
  Serious: No
  Sender: FDA-Public Use
  Company Number: US-ABBOTT-08P-163-0460897-00

PATIENT
  Sex: Female

DRUGS (9)
  1. COATED PDS [Suspect]
     Indication: BLOOD TRIGLYCERIDES INCREASED
     Route: 048
     Dates: start: 20080705
  2. COATED PDS [Suspect]
     Indication: HIGH DENSITY LIPOPROTEIN DECREASED
  3. ANTIHYPERTENSIVES [Concomitant]
     Indication: HYPERTENSION
  4. CARVEDILOL [Concomitant]
     Indication: HYPERTENSION
     Route: 048
  5. AMLODIPINE/BENAZP [Concomitant]
     Indication: HYPERTENSION
     Route: 048
  6. TIOTIXENE [Concomitant]
     Indication: BIPOLAR DISORDER
     Route: 048
  7. QUETIAPINE [Concomitant]
     Indication: BIPOLAR DISORDER
     Route: 048
  8. FLUOXETINE [Concomitant]
     Indication: BIPOLAR DISORDER
     Route: 048
  9. PSYCHIATRIC DRUGS [Concomitant]
     Indication: BIPOLAR DISORDER
     Route: 048

REACTIONS (2)
  - BURNING SENSATION [None]
  - PRURITUS [None]
